FAERS Safety Report 10815000 (Version 1)
Quarter: 2015Q1

REPORT INFORMATION
  Report Type: Report from Study
  Country: US (occurrence: US)
  Receive Date: 20150218
  Receipt Date: 20150218
  Transmission Date: 20150721
  Serious: Yes (Hospitalization)
  Sender: FDA-Public Use
  Company Number: US-ABBVIE-14K-163-1279081-00

PATIENT
  Age: 29 Year
  Sex: Female

DRUGS (7)
  1. HUMIRA [Suspect]
     Active Substance: ADALIMUMAB
     Indication: CROHN^S DISEASE
     Dates: start: 201107, end: 201209
  2. OXYCODONE [Concomitant]
     Active Substance: OXYCODONE
     Indication: PAIN
     Route: 048
  3. ALPRAZOLAM. [Concomitant]
     Active Substance: ALPRAZOLAM
     Indication: PRODUCT USED FOR UNKNOWN INDICATION
     Route: 048
  4. PREDNISONE. [Suspect]
     Active Substance: PREDNISONE
     Indication: DYSPNOEA
     Route: 048
     Dates: start: 201405
  5. PREDNISONE. [Suspect]
     Active Substance: PREDNISONE
     Indication: ECZEMA
  6. HUMIRA [Suspect]
     Active Substance: ADALIMUMAB
     Dates: start: 201212, end: 201401
  7. HUMIRA [Suspect]
     Active Substance: ADALIMUMAB
     Dates: start: 20140828

REACTIONS (13)
  - Herpes zoster [Unknown]
  - Eczema [Unknown]
  - Fatigue [Recovered/Resolved]
  - Gastric disorder [Unknown]
  - Tremor [Unknown]
  - Feeling abnormal [Unknown]
  - Eructation [Unknown]
  - Fear of injection [Unknown]
  - Crohn^s disease [Unknown]
  - Crohn^s disease [Unknown]
  - Asthma [Unknown]
  - Therapeutic response decreased [Unknown]
  - Gastrooesophageal reflux disease [Unknown]

NARRATIVE: CASE EVENT DATE: 201107
